FAERS Safety Report 6252503-5 (Version None)
Quarter: 2009Q3

REPORT INFORMATION
  Report Type: 
  Country: None (occurrence: None)
  Receive Date: 20090701
  Receipt Date: 20090623
  Transmission Date: 20100115
  Serious: Yes (Hospitalization, Congenital Anomaly, Other)
  Sender: FDA-Public Use
  Company Number: AU-ASTRAZENECA-2009SE03203

PATIENT
  Age: 0 Day
  Sex: Female
  Weight: 5 kg

DRUGS (1)
  1. ZD5077 - SEROQUEL [Suspect]
     Route: 048

REACTIONS (2)
  - CLEFT LIP AND PALATE [None]
  - RESPIRATORY DISTRESS [None]
